FAERS Safety Report 18446079 (Version 1)
Quarter: 2020Q4

REPORT INFORMATION
  Report Type: Spontaneous
  Country: US (occurrence: US)
  Receive Date: 20201030
  Receipt Date: 20201030
  Transmission Date: 20210114
  Serious: Yes (Other)
  Sender: FDA-Public Use
  Company Number: US-PBT-000494

PATIENT
  Age: 22 Year

DRUGS (1)
  1. TACROLIMUS. [Suspect]
     Active Substance: TACROLIMUS
     Indication: BONE MARROW TRANSPLANT
     Route: 065

REACTIONS (5)
  - Product use in unapproved indication [Unknown]
  - Blindness [Recovering/Resolving]
  - Gaze palsy [Recovering/Resolving]
  - Nystagmus [Unknown]
  - Wernicke^s encephalopathy [Unknown]
